FAERS Safety Report 20986033 (Version 1)
Quarter: 2022Q2

REPORT INFORMATION
  Report Type: Spontaneous
  Country: CN (occurrence: CN)
  Receive Date: 20220621
  Receipt Date: 20220621
  Transmission Date: 20220721
  Serious: Yes (Other)
  Sender: FDA-Public Use
  Company Number: None

PATIENT
  Age: 46 Year
  Sex: Female
  Weight: 76 kg

DRUGS (4)
  1. CYCLOPHOSPHAMIDE [Suspect]
     Active Substance: CYCLOPHOSPHAMIDE
     Indication: Neoplasm malignant
     Dosage: 1-3 CHEMOTHERAPY, CYCLOPHOSPHAMIDE 1G + 0.9% SODIUM CHLORIDE 30ML
     Route: 041
  2. CYCLOPHOSPHAMIDE [Suspect]
     Active Substance: CYCLOPHOSPHAMIDE
     Dosage: 1 G, QD, 4TH CHEMOTHERAPY, CYCLOPHOSPHAMIDE 1G + 0.9% SODIUM CHLORIDE 30ML
     Route: 041
     Dates: start: 20220606, end: 20220606
  3. SODIUM CHLORIDE [Suspect]
     Active Substance: SODIUM CHLORIDE
     Indication: Medication dilution
     Dosage: 1-3 CHEMOTHERAPY, CYCLOPHOSPHAMIDE 1G + 0.9% SODIUM CHLORIDE 30ML
     Route: 041
  4. SODIUM CHLORIDE [Suspect]
     Active Substance: SODIUM CHLORIDE
     Dosage: 30 ML, QD, 4TH CHEMOTHERAPY, CYCLOPHOSPHAMIDE 1G + 0.9% SODIUM CHLORIDE 30ML
     Route: 041
     Dates: start: 20220606, end: 20220606

REACTIONS (2)
  - Drug-induced liver injury [Unknown]
  - Hepatic function abnormal [Recovering/Resolving]

NARRATIVE: CASE EVENT DATE: 20220609
